FAERS Safety Report 11216251 (Version 3)
Quarter: 2017Q1

REPORT INFORMATION
  Report Type: Spontaneous
  Country: US (occurrence: US)
  Receive Date: 20150624
  Receipt Date: 20170308
  Transmission Date: 20170428
  Serious: Yes (Death, Hospitalization, Disabling, Other)
  Sender: FDA-Public Use
  Company Number: US-009507513-1506USA010598

PATIENT
  Sex: Female

DRUGS (3)
  1. FOSAMAX [Suspect]
     Active Substance: ALENDRONATE SODIUM
     Indication: OSTEOPOROSIS
     Dosage: 70 MG, QW
     Route: 048
  2. FOSAMAX [Suspect]
     Active Substance: ALENDRONATE SODIUM
     Dosage: 70 MG, QD
     Route: 048
     Dates: start: 199509, end: 20031003
  3. CALCIUM (UNSPECIFIED) [Concomitant]
     Active Substance: CALCIUM
     Indication: PRODUCT USED FOR UNKNOWN INDICATION
     Dosage: UNK, UNKNOWN
     Route: 048
     Dates: start: 1998, end: 20031003

REACTIONS (18)
  - Abdominal hernia [Unknown]
  - Hiatus hernia [Unknown]
  - Escherichia infection [Unknown]
  - Lung neoplasm [Unknown]
  - Inappropriate schedule of drug administration [Unknown]
  - Cataract [Unknown]
  - Femur fracture [Unknown]
  - Hypertension [Unknown]
  - Aortic aneurysm [Unknown]
  - Pain in extremity [Unknown]
  - Thyroid mass [Unknown]
  - Bone scan abnormal [Unknown]
  - Arthralgia [Unknown]
  - Nephrolithiasis [Unknown]
  - Large intestine polyp [Unknown]
  - Gastrooesophageal reflux disease [Unknown]
  - Haematocrit decreased [Unknown]
  - Arteriosclerosis [Fatal]

NARRATIVE: CASE EVENT DATE: 2003
